FAERS Safety Report 18799671 (Version 1)
Quarter: 2021Q1

REPORT INFORMATION
  Report Type: Spontaneous
  Country: US (occurrence: US)
  Receive Date: 20210128
  Receipt Date: 20210128
  Transmission Date: 20210419
  Serious: Yes (Other)
  Sender: FDA-Public Use
  Company Number: None

PATIENT
  Age: 34 Year
  Sex: Male
  Weight: 129.6 kg

DRUGS (5)
  1. ARIPIRAZOLE [Concomitant]
     Active Substance: ARIPIPRAZOLE
  2. GADAVIST [Suspect]
     Active Substance: GADOBUTROL
     Indication: X-RAY WITH CONTRAST
     Dates: start: 20210128, end: 20210128
  3. METROPROLOL [Concomitant]
     Active Substance: METOPROLOL
  4. ADVIL [Concomitant]
     Active Substance: IBUPROFEN
  5. WELLBUTRIN XL [Concomitant]
     Active Substance: BUPROPION HYDROCHLORIDE

REACTIONS (5)
  - Tremor [None]
  - Vomiting [None]
  - Nausea [None]
  - Abdominal discomfort [None]
  - Burning sensation [None]

NARRATIVE: CASE EVENT DATE: 20210128
